FAERS Safety Report 7497624-4 (Version None)
Quarter: 2011Q2

REPORT INFORMATION
  Report Type: 
  Country: None (occurrence: None)
  Receive Date: 20110523
  Receipt Date: 20110506
  Transmission Date: 20111010
  Serious: No
  Sender: FDA-Public Use
  Company Number: US-B.I. PHARMACEUTICALS,INC./RIDGEFIELD-2011-BP-12557BP

PATIENT
  Age: 75 Year
  Sex: Female

DRUGS (6)
  1. SPIRIVA [Suspect]
     Route: 055
     Dates: start: 20070101
  2. COPPER [Concomitant]
     Indication: PROPHYLAXIS
     Route: 048
  3. MULTIPLE VITAMIN [Concomitant]
     Indication: PROPHYLAXIS
     Route: 048
  4. NIACIN [Concomitant]
     Indication: PROPHYLAXIS
     Route: 048
  5. SPIRIVA [Suspect]
     Indication: CHRONIC OBSTRUCTIVE PULMONARY DISEASE
     Dosage: 18 MCG
     Route: 055
     Dates: start: 20060101, end: 20070101
  6. VITAMIN D [Concomitant]
     Indication: PROPHYLAXIS
     Route: 048

REACTIONS (3)
  - FATIGUE [None]
  - PAIN IN EXTREMITY [None]
  - RASH [None]
